FAERS Safety Report 7325054-4 (Version None)
Quarter: 2011Q1

REPORT INFORMATION
  Report Type: 
  Country: None (occurrence: None)
  Receive Date: 20110302
  Receipt Date: 20110223
  Transmission Date: 20110831
  Serious: Yes (Other)
  Sender: FDA-Public Use
  Company Number: US-ASTRAZENECA-2007UW02123

PATIENT
  Age: 15247 Day
  Sex: Female
  Weight: 117 kg

DRUGS (25)
  1. SEROQUEL [Suspect]
     Indication: BIPOLAR DISORDER
     Route: 048
     Dates: start: 20010308
  2. SEROQUEL [Suspect]
     Indication: DEPRESSED MOOD
     Route: 048
     Dates: start: 20010308
  3. PREDNISONE [Concomitant]
     Route: 048
  4. NEXIUM [Concomitant]
     Route: 048
  5. PROMETHAZINE HYDROCHLORIDE [Concomitant]
     Route: 065
  6. ETODOLAC [Concomitant]
     Route: 048
  7. METFORMIN HYDROCHLORIDE [Concomitant]
     Route: 048
  8. LISINOPRIL [Concomitant]
     Dosage: 2.5-5.0 MG
     Route: 048
  9. OXYCODONE [Concomitant]
     Route: 048
  10. BENZONATATE [Concomitant]
     Route: 065
  11. ZELNORM [Concomitant]
     Route: 048
  12. HYDROCODONE [Concomitant]
     Route: 065
  13. SEROQUEL [Suspect]
     Dosage: 25-800 MG
     Route: 048
     Dates: start: 20010308
  14. GEODON [Concomitant]
     Dosage: 40-80 MG
     Route: 048
  15. DICLOFENAC SODIUM [Concomitant]
     Route: 048
  16. CRESTOR [Concomitant]
     Dosage: 5-10 MG
     Route: 048
  17. TIZANIDINE [Concomitant]
     Route: 048
  18. VOLMAX [Concomitant]
     Route: 048
  19. PROZAC [Concomitant]
     Indication: DEPRESSED MOOD
     Route: 048
  20. ATENOLOL [Concomitant]
     Route: 048
  21. SEROQUEL [Suspect]
     Dosage: 25-800 MG
     Route: 048
     Dates: start: 20010308
  22. TRAMADOL [Concomitant]
     Route: 048
  23. RANITIDINE [Concomitant]
     Route: 048
  24. IBUPROFEN [Concomitant]
     Indication: ARTHRALGIA
     Dosage: 400-800 MG
     Route: 048
  25. FERROUS SULFATE TAB [Concomitant]
     Route: 048

REACTIONS (16)
  - SKIN FIBROSIS [None]
  - NAUSEA [None]
  - MENORRHAGIA [None]
  - UTERINE HAEMORRHAGE [None]
  - VAGINAL INFECTION [None]
  - BREAST ENLARGEMENT [None]
  - DIARRHOEA [None]
  - CHOLECYSTITIS CHRONIC [None]
  - CHOLELITHIASIS [None]
  - BREAST DISORDER [None]
  - LUMBARISATION [None]
  - VOMITING [None]
  - TYPE 2 DIABETES MELLITUS [None]
  - ABDOMINAL PAIN [None]
  - CYST [None]
  - GENITAL TRACT INFLAMMATION [None]
